FAERS Safety Report 4473744-3 (Version None)
Quarter: 2004Q4

REPORT INFORMATION
  Report Type: 
  Country: None (occurrence: None)
  Receive Date: 20040907
  Receipt Date: 20030718
  Transmission Date: 20050328
  Serious: Yes (Hospitalization)
  Sender: FDA-Public Use
  Company Number: PHEH2003US06195

PATIENT
  Age: 52 Year
  Sex: Male

DRUGS (3)
  1. NEORAL [Suspect]
     Indication: RENAL TRANSPLANT
     Dosage: 125 MG IN AM + 100 MG IN PM, ORAL
     Route: 048
     Dates: start: 19960101, end: 20030716
  2. PREDNISONE [Concomitant]
  3. PROCARDIA [Concomitant]

REACTIONS (10)
  - COMPUTERISED TOMOGRAM ABNORMAL [None]
  - DIARRHOEA [None]
  - HAEMOGLOBIN DECREASED [None]
  - LEUKOENCEPHALOPATHY [None]
  - MENTAL STATUS CHANGES [None]
  - NAUSEA [None]
  - NEUROTOXICITY [None]
  - NUCLEAR MAGNETIC RESONANCE IMAGING ABNORMAL [None]
  - PLATELET COUNT DECREASED [None]
  - VOMITING [None]
